FAERS Safety Report 13794227 (Version 4)
Quarter: 2017Q3

REPORT INFORMATION
  Report Type: Spontaneous
  Country: US (occurrence: US)
  Receive Date: 20170726
  Receipt Date: 20170925
  Transmission Date: 20171127
  Serious: Yes (Other)
  Sender: FDA-Public Use
  Company Number: US-PFIZER INC-2017317828

PATIENT
  Age: 67 Year
  Sex: Male

DRUGS (2)
  1. LIDOCAINE HCL AND EPINEPHRINE /00056401/ [Concomitant]
     Indication: ANAESTHESIA
     Dosage: 1% LIDOCAINE WITH EPINEPHRINE OVER 1 MINUTE
     Dates: start: 20170714, end: 20170714
  2. SODIUM BICARBONATE. [Suspect]
     Active Substance: SODIUM BICARBONATE
     Indication: ANAESTHESIA
     Dosage: UNK
     Route: 023
     Dates: start: 20170714, end: 20170714

REACTIONS (5)
  - Product lot number issue [Unknown]
  - Product use issue [Unknown]
  - Cellulitis [Recovering/Resolving]
  - White blood cell count increased [Unknown]
  - Incorrect route of drug administration [Unknown]

NARRATIVE: CASE EVENT DATE: 20170714
